FAERS Safety Report 19452087 (Version 1)
Quarter: 2021Q2

REPORT INFORMATION
  Report Type: Spontaneous
  Country: US (occurrence: US)
  Receive Date: 20210623
  Receipt Date: 20210623
  Transmission Date: 20210717
  Serious: No
  Sender: FDA-Public Use
  Company Number: None

PATIENT
  Age: 32 Year
  Sex: Male
  Weight: 108 kg

DRUGS (3)
  1. ARIPIPRAZOLE 400MG IM INJ. [Concomitant]
  2. VALPROIC ACID. [Suspect]
     Active Substance: VALPROIC ACID
     Route: 048
     Dates: start: 20200902, end: 20210426
  3. VALPROIC ACID. [Suspect]
     Active Substance: VALPROIC ACID
     Route: 048
     Dates: start: 20200902, end: 20210426

REACTIONS (1)
  - Tremor [None]

NARRATIVE: CASE EVENT DATE: 20210304
